FAERS Safety Report 26097747 (Version 1)
Quarter: 2025Q4

REPORT INFORMATION
  Report Type: Spontaneous
  Country: US (occurrence: US)
  Receive Date: 20251127
  Receipt Date: 20251127
  Transmission Date: 20260118
  Serious: No
  Sender: TEVA
  Company Number: US-TEVA-VS-3390934

PATIENT

DRUGS (1)
  1. LESSINA [Suspect]
     Active Substance: ETHINYL ESTRADIOL\LEVONORGESTREL
     Indication: Product used for unknown indication
     Dosage: STRENGTH: 0.1- 0.02MG-MG
     Route: 048

REACTIONS (4)
  - Anxiety [Unknown]
  - Dizziness [Unknown]
  - Nausea [Unknown]
  - Feeling jittery [Unknown]

NARRATIVE: CASE EVENT DATE: 20251101
